FAERS Safety Report 8031344-2 (Version None)
Quarter: 2012Q1

REPORT INFORMATION
  Report Type: 
  Country: None (occurrence: None)
  Receive Date: 20120109
  Receipt Date: 20120102
  Transmission Date: 20120608
  Serious: Yes (Hospitalization)
  Sender: FDA-Public Use
  Company Number: FR-GLAXOSMITHKLINE-B0774093A

PATIENT
  Age: 54 Year
  Sex: Female

DRUGS (1)
  1. NABUMETONE [Suspect]
     Indication: ARTHRALGIA
     Dosage: 2G PER DAY
     Route: 048
     Dates: start: 20111206, end: 20111206

REACTIONS (3)
  - OEDEMA PERIPHERAL [None]
  - DYSPNOEA [None]
  - CHEST PAIN [None]
